FAERS Safety Report 12334177 (Version 1)
Quarter: 2016Q2

REPORT INFORMATION
  Report Type: Spontaneous
  Country: US (occurrence: US)
  Receive Date: 20160504
  Receipt Date: 20160504
  Transmission Date: 20160815
  Serious: No
  Sender: FDA-Public Use
  Company Number: US-ABBVIE-15P-163-1441160-00

PATIENT

DRUGS (1)
  1. CREON [Suspect]
     Active Substance: PANCRELIPASE AMYLASE\PANCRELIPASE LIPASE\PANCRELIPASE PROTEASE
     Indication: PRODUCT USED FOR UNKNOWN INDICATION
     Dosage: 2500 UNITS/KG/MEAL
     Route: 065

REACTIONS (4)
  - Diarrhoea [Unknown]
  - Drug-disease interaction [Unknown]
  - Weight decreased [Unknown]
  - Impaired gastric emptying [Not Recovered/Not Resolved]
